FAERS Safety Report 6831977-2 (Version None)
Quarter: 2010Q3

REPORT INFORMATION
  Report Type: 
  Country: None (occurrence: None)
  Receive Date: 20100712
  Receipt Date: 20100701
  Transmission Date: 20110219
  Serious: Yes (Hospitalization, Other)
  Sender: FDA-Public Use
  Company Number: US-ROCHE-709040

PATIENT
  Sex: Female
  Weight: 50.3 kg

DRUGS (9)
  1. BEVACIZUMAB [Suspect]
     Dosage: DAY 1 AND DAY 15. LAST DOSE PRIOR TO SAE: 17 MAY 2010
     Route: 042
     Dates: start: 20100517
  2. GEMCITABINE [Suspect]
     Dosage: DAY 1 AND 15.
     Route: 042
     Dates: start: 20090101
  3. CARBOPLATIN [Suspect]
     Dosage: DAY 1 AND 15.
     Route: 042
     Dates: start: 20090101
  4. VANCOMYCIN [Concomitant]
  5. IBUPROFEN [Concomitant]
     Indication: PAIN
     Dosage: FREQUENCY: PRN
     Route: 048
  6. COLACE [Concomitant]
     Indication: LAXATIVE SUPPORTIVE CARE
     Dosage: AS REPORTED, DOSE:  1-2
  7. ATIVAN [Concomitant]
     Route: 048
  8. POTASSIUM [Concomitant]
     Dosage: FREQUENCY: QD
     Route: 048
  9. MAG OXIDE [Concomitant]
     Dosage: FREQUENCY: QDAY
     Route: 054

REACTIONS (10)
  - ABDOMINAL PAIN [None]
  - ACTIVATED PARTIAL THROMBOPLASTIN TIME PROLONGED [None]
  - ASCITES [None]
  - ASTHENIA [None]
  - HYDRONEPHROSIS [None]
  - MEAN PLATELET VOLUME DECREASED [None]
  - PELVIC VENOUS THROMBOSIS [None]
  - PYREXIA [None]
  - RED BLOOD CELL COUNT DECREASED [None]
  - WHITE BLOOD CELL COUNT DECREASED [None]
